FAERS Safety Report 12110800 (Version 1)
Quarter: 2016Q1

REPORT INFORMATION
  Report Type: Spontaneous
  Country: US (occurrence: US)
  Receive Date: 20160224
  Receipt Date: 20160224
  Transmission Date: 20160526
  Serious: No
  Sender: FDA-Public Use
  Company Number: US-JAZZ-2015-US-002465

PATIENT
  Age: 60 Year
  Sex: Male

DRUGS (3)
  1. TRAMADOL. [Concomitant]
     Active Substance: TRAMADOL
     Dosage: UNK
     Dates: end: 20150202
  2. PRIALT [Suspect]
     Active Substance: ZICONOTIDE ACETATE
     Indication: PAIN
     Dosage: 0.079 ?G, QH
     Route: 037
  3. PRIALT [Suspect]
     Active Substance: ZICONOTIDE ACETATE
     Indication: ARTHROPATHY

REACTIONS (9)
  - Tongue discolouration [Unknown]
  - Libido increased [Unknown]
  - Pain [Recovering/Resolving]
  - Erectile dysfunction [Unknown]
  - Retching [Unknown]
  - Diarrhoea [Unknown]
  - Mood altered [Unknown]
  - Flatulence [Unknown]
  - Dysgeusia [Unknown]

NARRATIVE: CASE EVENT DATE: 20141205
